FAERS Safety Report 7077379 (Version 2)
Quarter: 2014Q3

REPORT INFORMATION
  Report Type: Spontaneous
  Country: US (occurrence: None)
  Receive Date: 20090803
  Receipt Date: 20140912
  Transmission Date: 20150326
  Serious: Yes (Other)
  Sender: FDA-Public Use
  Company Number: 2009S1005966

PATIENT
  Age: 65 Year
  Sex: Male
  Weight: 90 kg

DRUGS (9)
  1. HYZAAR (HYDROCHLOROTHIAZIDE, LOSARTAN POTASSIUM) [Concomitant]
  2. PHOSPHO-SODA [Suspect]
     Active Substance: SODIUM PHOSPHATE, DIBASIC\SODIUM PHOSPHATE, MONOBASIC
     Indication: COLONOSCOPY
     Route: 048
     Dates: start: 20071118, end: 20071119
  3. ASPIRIN. [Concomitant]
     Active Substance: ASPIRIN
  4. PLAVIX (CLOPIDOGREL BISULFATE) [Concomitant]
  5. DIAZEPAM (DIAZEPAM) [Concomitant]
     Active Substance: DIAZEPAM
  6. LIPITOR [Concomitant]
     Active Substance: ATORVASTATIN CALCIUM
  7. ZOCOR [Concomitant]
     Active Substance: SIMVASTATIN
  8. PROCARDIA [Concomitant]
     Active Substance: NIFEDIPINE
  9. KLONOPIN [Concomitant]
     Active Substance: CLONAZEPAM

REACTIONS (16)
  - Myeloma cast nephropathy [None]
  - Nephrogenic anaemia [None]
  - Acute phosphate nephropathy [None]
  - Dyspnoea [None]
  - Pain in jaw [None]
  - Myocardial ischaemia [None]
  - Diarrhoea [None]
  - Renal failure chronic [None]
  - Renal artery stenosis [None]
  - Fat embolism [None]
  - Cardiac stress test abnormal [None]
  - Chest discomfort [None]
  - Peripheral vascular disorder [None]
  - Hyperlipidaemia [None]
  - Throat tightness [None]
  - Renal failure acute [None]

NARRATIVE: CASE EVENT DATE: 200802
